FAERS Safety Report 10028825 (Version 2)
Quarter: 2014Q1

REPORT INFORMATION
  Report Type: Spontaneous
  Country: AU (occurrence: AU)
  Receive Date: 20140321
  Receipt Date: 20140321
  Transmission Date: 20141002
  Serious: Yes (Other)
  Sender: FDA-Public Use
  Company Number: AU-ABBVIE-12P-008-0921796-00

PATIENT
  Age: 61 Year
  Sex: Male

DRUGS (4)
  1. HUMIRA 40 MG/ 0.8 ML PRE-FILLED SYRINGE [Suspect]
     Indication: PSORIASIS
     Dates: start: 200911, end: 201104
  2. COVERSYL [Concomitant]
     Indication: HYPERTENSION
  3. EFEXOR [Concomitant]
     Indication: DEPRESSION
  4. PERINDOPRIL [Concomitant]
     Indication: HYPERTENSION
     Dates: start: 2009

REACTIONS (9)
  - Renal failure acute [Recovering/Resolving]
  - Systemic lupus erythematosus [Unknown]
  - IgA nephropathy [Unknown]
  - Hypertension [Unknown]
  - Mesangioproliferative glomerulonephritis [Unknown]
  - Fatigue [Unknown]
  - Decreased appetite [Unknown]
  - Blood pressure inadequately controlled [Unknown]
  - Injection site erythema [Unknown]
